FAERS Safety Report 14345284 (Version 1)
Quarter: 2017Q4

REPORT INFORMATION
  Report Type: Spontaneous
  Country: US (occurrence: US)
  Receive Date: 20171230
  Receipt Date: 20171230
  Transmission Date: 20180321
  Serious: Yes (Other)
  Sender: FDA-Public Use
  Company Number: None

PATIENT
  Sex: Female

DRUGS (1)
  1. PROLIA [Suspect]
     Active Substance: DENOSUMAB
     Indication: SENILE OSTEOPOROSIS
     Dosage: 60MG EVERY 180 DAYS SUBCUTANEOUSLY
     Route: 058
     Dates: start: 20170801, end: 20170802

REACTIONS (3)
  - Malaise [None]
  - Pain [None]
  - Therapy cessation [None]
